FAERS Safety Report 22783270 (Version 5)
Quarter: 2023Q4

REPORT INFORMATION
  Report Type: Spontaneous
  Country: US (occurrence: US)
  Receive Date: 20230803
  Receipt Date: 20231116
  Transmission Date: 20240110
  Serious: No
  Sender: FDA-Public Use
  Company Number: US-PFIZER INC-202300263497

PATIENT
  Age: 16 Year
  Sex: Male
  Weight: 68.49 kg

DRUGS (1)
  1. GENOTROPIN [Suspect]
     Active Substance: SOMATROPIN
     Indication: Growth disorder
     Dosage: 3.8 (UNIT UNKNOWN), EVERY DAY EXCEPT ONE DAY A WEEK
     Dates: start: 2021

REACTIONS (2)
  - Expired device used [Unknown]
  - Device mechanical issue [Unknown]

NARRATIVE: CASE EVENT DATE: 20230101
